FAERS Safety Report 9704901 (Version 1)
Quarter: 2013Q4

REPORT INFORMATION
  Report Type: Not Available
  Country: US (occurrence: US)
  Receive Date: 20131122
  Receipt Date: 20131122
  Transmission Date: 20140711
  Serious: No
  Sender: FDA-Public Use
  Company Number: US-AMARIN PHARMA, INC.-2013AMR000078

PATIENT
  Age: 43 Year
  Sex: Male
  Weight: 90.8 kg

DRUGS (4)
  1. VASCEPA [Suspect]
     Indication: PRODUCT USED FOR UNKNOWN INDICATION
     Dosage: FOUR CAPSULES DAILY
     Route: 065
     Dates: start: 201309
  2. VASCEPA [Suspect]
     Dosage: FOUR CAPSULES DAILY
     Route: 065
  3. VASCEPA [Suspect]
     Dates: start: 20131008, end: 20131008
  4. LIPOFEN [Concomitant]
     Indication: PRODUCT USED FOR UNKNOWN INDICATION
     Route: 065

REACTIONS (4)
  - Eyelid oedema [Recovered/Resolved]
  - Lip swelling [None]
  - Eye swelling [None]
  - Pain [None]
